FAERS Safety Report 6595246-0 (Version None)
Quarter: 2010Q1

REPORT INFORMATION
  Report Type: 
  Country: None (occurrence: None)
  Receive Date: 20100212
  Receipt Date: 20100129
  Transmission Date: 20100710
  Serious: Yes (Hospitalization, Other)
  Sender: FDA-Public Use
  Company Number: TPA2009A03860

PATIENT
  Age: 78 Year
  Sex: Male
  Weight: 93.8946 kg

DRUGS (3)
  1. ACTOS [Suspect]
     Indication: TYPE 2 DIABETES MELLITUS
     Dosage: 45 MG, 1 IN 1 D, ORAL
     Route: 048
     Dates: start: 20030101, end: 20091101
  2. DIOVAN [Concomitant]
  3. REFRESH TEARS (ALL OTHER THERAPEUTIC PRODUCTS) [Concomitant]

REACTIONS (10)
  - CARDIAC PACEMAKER INSERTION [None]
  - DRY EYE [None]
  - EYE IRRIGATION [None]
  - GINGIVAL ERYTHEMA [None]
  - GINGIVAL PAIN [None]
  - HEART RATE DECREASED [None]
  - PAIN IN EXTREMITY [None]
  - PHARYNGEAL ERYTHEMA [None]
  - THROAT IRRITATION [None]
  - WEIGHT INCREASED [None]
